FAERS Safety Report 15239063 (Version 2)
Quarter: 2018Q3

REPORT INFORMATION
  Report Type: Spontaneous
  Country: GB (occurrence: GB)
  Receive Date: 20180803
  Receipt Date: 20180925
  Transmission Date: 20181010
  Serious: Yes (Other)
  Sender: FDA-Public Use
  Company Number: GB-TEVA-2018-GB-934622

PATIENT
  Age: 18 Year
  Sex: Male
  Weight: 42 kg

DRUGS (14)
  1. REMIFENTANIL [Suspect]
     Active Substance: REMIFENTANIL
     Indication: SEDATION
     Dosage: PER MINUTE
     Route: 040
     Dates: start: 20180514, end: 20180514
  2. KETAMINE [Suspect]
     Active Substance: KETAMINE
     Indication: SEDATION
     Dosage: 25 MG BEFORE SKIN INCISION AND 25 MG ABOUT AN OUR BEFORE THE END OF SURGERY.
     Route: 040
     Dates: start: 20180514, end: 20180514
  3. DIAZEPAM. [Interacting]
     Active Substance: DIAZEPAM
     Indication: PROCEDURAL ANXIETY
  4. TRANEXAMIC ACID. [Suspect]
     Active Substance: TRANEXAMIC ACID
     Indication: SEDATION
     Route: 040
     Dates: start: 20180514, end: 20180514
  5. PROPOFOL. [Suspect]
     Active Substance: PROPOFOL
     Indication: SEDATION
  6. GABAPENTIN. [Concomitant]
     Active Substance: GABAPENTIN
     Dosage: 900 MILLIGRAM DAILY;
     Dates: start: 20180513, end: 20180515
  7. DIAZEPAM. [Suspect]
     Active Substance: DIAZEPAM
     Indication: ANXIETY
     Route: 065
     Dates: start: 20180513, end: 20180513
  8. CLONIDINE. [Suspect]
     Active Substance: CLONIDINE
     Indication: SEDATION
     Dosage: 4 ALIQUOTS OF 15 MICROGRAMS OVER SEVERAL HOURS
     Route: 040
     Dates: start: 20180514, end: 20180514
  9. MAGNESIUM SULFATE. [Suspect]
     Active Substance: MAGNESIUM SULFATE
     Route: 065
  10. MIDAZOLAM [Suspect]
     Active Substance: MIDAZOLAM HYDROCHLORIDE
     Indication: INDUCTION OF ANAESTHESIA
  11. GABAPENTIN. [Interacting]
     Active Substance: GABAPENTIN
     Dosage: THE NIGHT BEFORE SURGERY AND ON THE MORNING OF SURGERY,
     Route: 065
     Dates: start: 20180513, end: 20180515
  12. MIDAZOLAM [Suspect]
     Active Substance: MIDAZOLAM HYDROCHLORIDE
     Indication: ANXIETY
     Dosage: HALF AN HOUR BEFORE INDUCTION OF ANAESTHESIA
     Route: 065
     Dates: start: 20180514, end: 20180514
  13. FENTANYL. [Interacting]
     Active Substance: FENTANYL
     Indication: SEDATION
     Route: 040
     Dates: start: 20180514, end: 20180516
  14. PROPOFOL. [Suspect]
     Active Substance: PROPOFOL
     Indication: ANAESTHESIA
     Dosage: 3.3 MCG/ML
     Route: 040
     Dates: start: 20180514, end: 20180514

REACTIONS (7)
  - Drug interaction [Unknown]
  - Delirium [Recovered/Resolved]
  - Somnolence [Recovered/Resolved]
  - Confusional state [Recovered/Resolved]
  - Disorientation [Recovered/Resolved]
  - Nystagmus [Recovered/Resolved]
  - Aphasia [Recovered/Resolved]

NARRATIVE: CASE EVENT DATE: 20180514
